FAERS Safety Report 8276311-9 (Version None)
Quarter: 2012Q2

REPORT INFORMATION
  Report Type: 
  Country: None (occurrence: None)
  Receive Date: 20120412
  Receipt Date: 20120406
  Transmission Date: 20120825
  Serious: Yes (Hospitalization, Other)
  Sender: FDA-Public Use
  Company Number: PHEH2012US005432

PATIENT
  Sex: Female
  Weight: 62.585 kg

DRUGS (18)
  1. GILENYA [Suspect]
     Indication: RELAPSING-REMITTING MULTIPLE SCLEROSIS
     Dosage: 0.5 MG, DAILY
     Route: 048
     Dates: start: 20120302, end: 20120403
  2. XANAX [Concomitant]
  3. ELAVIL [Concomitant]
  4. KLONOPIN [Concomitant]
  5. SINGULAIR [Concomitant]
  6. PRILOSEC [Concomitant]
  7. M.V.I. [Concomitant]
  8. FLECAINIDE ACETATE [Concomitant]
  9. EDICIN [Concomitant]
  10. EVISTA [Concomitant]
  11. PNEUMOVAX 23 [Concomitant]
  12. NORVASC [Concomitant]
  13. COLACE [Concomitant]
  14. METAMUCIL-2 [Concomitant]
  15. VITAMIN D [Concomitant]
  16. LIPITOR [Concomitant]
  17. ASPIRIN [Concomitant]
  18. FISH OIL [Concomitant]

REACTIONS (3)
  - ATRIAL FIBRILLATION [None]
  - PALPITATIONS [None]
  - DIZZINESS [None]
